FAERS Safety Report 7006315-5 (Version None)
Quarter: 2010Q3

REPORT INFORMATION
  Report Type: 
  Country: None (occurrence: None)
  Receive Date: 20100921
  Receipt Date: 20100909
  Transmission Date: 20110219
  Serious: Yes (Hospitalization, Other)
  Sender: FDA-Public Use
  Company Number: FR-WYE-H17499910

PATIENT
  Sex: Male

DRUGS (12)
  1. INIPOMP [Suspect]
     Route: 048
  2. FLUDEX [Suspect]
     Route: 048
     Dates: end: 20091229
  3. TOPALGIC [Suspect]
     Route: 048
     Dates: end: 20091229
  4. VALPROATE SODIUM [Suspect]
     Route: 048
  5. COLCHICINE [Suspect]
     Route: 048
     Dates: start: 20080601, end: 20091225
  6. NEURONTIN [Suspect]
     Route: 048
  7. SERETIDE [Suspect]
     Route: 055
  8. ZYLORIC [Suspect]
     Route: 048
  9. TAMSULOSIN HYDROCHLORIDE [Suspect]
     Route: 048
     Dates: end: 20091229
  10. SOTALEX [Suspect]
     Route: 048
  11. KARDEGIC [Suspect]
     Route: 048
     Dates: end: 20091229
  12. KARDEGIC [Suspect]
     Route: 048
     Dates: start: 20091230

REACTIONS (8)
  - CONFUSIONAL STATE [None]
  - ELECTROCARDIOGRAM ABNORMAL [None]
  - INCONTINENCE [None]
  - LOSS OF CONSCIOUSNESS [None]
  - MALAISE [None]
  - ORTHOSTATIC HYPOTENSION [None]
  - RENAL FAILURE [None]
  - URINARY INCONTINENCE [None]
